FAERS Safety Report 5565553-9 (Version None)
Quarter: 2007Q4

REPORT INFORMATION
  Report Type: 
  Country: None (occurrence: None)
  Receive Date: 20071218
  Receipt Date: 20071206
  Transmission Date: 20080405
  Serious: Yes (Other)
  Sender: FDA-Public Use
  Company Number: US-PFIZER INC-2007104047

PATIENT
  Sex: Male
  Weight: 76.818 kg

DRUGS (9)
  1. LYRICA [Suspect]
     Route: 048
     Dates: start: 20071006, end: 20071117
  2. HYDROCODONE BITARTRATE [Concomitant]
  3. TOPROL-XL [Concomitant]
  4. CARISOPRODOL [Concomitant]
  5. FLURBIPROFEN [Concomitant]
  6. NORCO [Concomitant]
  7. DIAZEPAM [Concomitant]
  8. HYDROXYZINE [Concomitant]
  9. ALBUTEROL [Concomitant]

REACTIONS (3)
  - CONVULSION [None]
  - LOSS OF CONSCIOUSNESS [None]
  - MEMORY IMPAIRMENT [None]
